FAERS Safety Report 14931423 (Version 1)
Quarter: 2018Q2

REPORT INFORMATION
  Report Type: Report from Study
  Country: ES (occurrence: ES)
  Receive Date: 20180524
  Receipt Date: 20180524
  Transmission Date: 20180711
  Serious: Yes (Hospitalization)
  Sender: FDA-Public Use
  Company Number: ES-TEVA-2018-ES-895928

PATIENT
  Age: 41 Year
  Sex: Male

DRUGS (3)
  1. CICLOSPORIN (406A) [Suspect]
     Active Substance: CYCLOSPORINE
     Indication: DERMATITIS ATOPIC
     Dosage: 300 MILLIGRAM DAILY;
     Route: 048
     Dates: start: 20161011, end: 20161031
  2. COLCHIMAX 0,5/5 MG COMPRIMIDOS, 60 COMPRIMIDOS [Concomitant]
     Indication: FAMILIAL MEDITERRANEAN FEVER
     Dosage: 3.5 MILLIGRAM DAILY;
     Route: 048
     Dates: end: 20161031
  3. PREDNISONA (886A) [Suspect]
     Active Substance: PREDNISONE
     Indication: DERMATITIS ATOPIC
     Dosage: 20 MILLIGRAM DAILY;
     Route: 048
     Dates: start: 20161011, end: 20161031

REACTIONS (1)
  - Myopathy [Recovered/Resolved]

NARRATIVE: CASE EVENT DATE: 20161024
